FAERS Safety Report 6052861-0 (Version None)
Quarter: 2009Q1

REPORT INFORMATION
  Report Type: 
  Country: None (occurrence: None)
  Receive Date: 20090127
  Receipt Date: 20090120
  Transmission Date: 20090719
  Serious: Yes (Hospitalization, Disabling)
  Sender: FDA-Public Use
  Company Number: FR-BAYER-200911567GPV

PATIENT
  Age: 78 Year
  Sex: Male

DRUGS (8)
  1. CIFLOX [Suspect]
     Indication: URINARY TRACT INFECTION
     Dosage: UNIT DOSE: 500 MG
     Route: 048
     Dates: start: 20080824, end: 20080903
  2. PLAVIX [Concomitant]
     Indication: DRUG USE FOR UNKNOWN INDICATION
     Route: 065
     Dates: start: 20010101
  3. COVERSYL [Concomitant]
     Indication: DRUG USE FOR UNKNOWN INDICATION
     Route: 065
     Dates: start: 20010101
  4. TRAVATAN [Concomitant]
     Indication: DRUG USE FOR UNKNOWN INDICATION
     Route: 047
  5. URIDOZ [Concomitant]
     Indication: INFECTION
     Route: 065
     Dates: start: 20080918, end: 20080918
  6. ROCEPHIN [Concomitant]
     Indication: INFECTION
     Route: 058
     Dates: start: 20080922
  7. AUGMENTIN '125' [Concomitant]
     Indication: INFECTION
     Dosage: UNIT DOSE: 1 G
     Route: 065
     Dates: start: 20081013
  8. FLAGYL [Concomitant]
     Indication: INFECTION
     Dosage: UNIT DOSE: 500 MG
     Route: 065
     Dates: start: 20081013

REACTIONS (2)
  - CONDITION AGGRAVATED [None]
  - POLYNEUROPATHY [None]
